FAERS Safety Report 9175029 (Version 3)
Quarter: 2013Q2

REPORT INFORMATION
  Report Type: Spontaneous
  Country: US (occurrence: US)
  Receive Date: 20130320
  Receipt Date: 20130521
  Transmission Date: 20140414
  Serious: Yes (Hospitalization, Other)
  Sender: FDA-Public Use
  Company Number: US-009507513-1303USA008970

PATIENT
  Sex: Female
  Weight: 72.11 kg

DRUGS (1)
  1. NUVARING [Suspect]
     Indication: CONTRACEPTION
     Dosage: 0.12-0.015 MG/24 HR, QM
     Route: 067
     Dates: start: 200712, end: 20100320

REACTIONS (11)
  - Pulmonary embolism [Unknown]
  - Deep vein thrombosis [Unknown]
  - Road traffic accident [Unknown]
  - Thrombosis [Unknown]
  - Muscle strain [Unknown]
  - Pulmonary infarction [Unknown]
  - Rhinorrhoea [Unknown]
  - Pneumonia [Recovered/Resolved]
  - Pleurisy [Unknown]
  - Ligament sprain [Unknown]
  - Deep vein thrombosis [Unknown]
